FAERS Safety Report 10557782 (Version 4)
Quarter: 2014Q4

REPORT INFORMATION
  Report Type: Spontaneous
  Country: JP (occurrence: None)
  Receive Date: 20141029
  Receipt Date: 20141202
  Transmission Date: 20150529
  Serious: Yes (Hospitalization)
  Sender: FDA-Public Use
  Company Number: JP2014JPN009126

PATIENT
  Weight: 3.56 kg

DRUGS (4)
  1. LEXOTAN [Suspect]
     Active Substance: BROMAZEPAM
     Route: 064
  2. VEGETAMIN (CHLORPROMAZINE HYDROCHLORIDE + PHENOBARBITAL + PROMETHAZINE HYDROCHLORIDE) TABLET [Suspect]
     Active Substance: CHLORPROMAZINE HYDROCHLORIDE\PHENOBARBITAL\PROMETHAZINE HYDROCHLORIDE
     Indication: GENERALISED ANXIETY DISORDER
     Route: 064
  3. PAXIL [Suspect]
     Active Substance: PAROXETINE HYDROCHLORIDE
     Indication: GENERALISED ANXIETY DISORDER
     Route: 064
  4. ETIZOLAM (ETIZOLAM) TABLET [Suspect]
     Active Substance: ETIZOLAM
     Indication: GENERALISED ANXIETY DISORDER
     Route: 064

REACTIONS (15)
  - Drug withdrawal syndrome neonatal [None]
  - Somnolence [None]
  - Tachycardia [None]
  - Use of accessory respiratory muscles [None]
  - Irritability [None]
  - Maternal drugs affecting foetus [None]
  - Oxygen saturation decreased [None]
  - Hypotonia [None]
  - Tachypnoea [None]
  - Dyskinesia [None]
  - Caesarean section [None]
  - Seizure [None]
  - Crying [None]
  - Respiratory disorder [None]
  - Tremor [None]
